FAERS Safety Report 16382237 (Version 1)
Quarter: 2019Q2

REPORT INFORMATION
  Report Type: Spontaneous
  Country: US (occurrence: US)
  Receive Date: 20190603
  Receipt Date: 20190603
  Transmission Date: 20190711
  Serious: No
  Sender: FDA-Public Use
  Company Number: US-GLENMARK PHARMACEUTICALS-2019GMK040697

PATIENT

DRUGS (2)
  1. ATOMOXETINE CAPSULES USP [80MG] [Suspect]
     Active Substance: ATOMOXETINE HYDROCHLORIDE
     Indication: DYSLEXIA
  2. ATOMOXETINE CAPSULES USP [80MG] [Suspect]
     Active Substance: ATOMOXETINE HYDROCHLORIDE
     Indication: ATTENTION DEFICIT/HYPERACTIVITY DISORDER
     Dosage: 80 MG, OD (ONE TIME A DAY IN THE MORNING, APPROXIMATELY 6:00 AM, ONE HOUR BEFORE TAKING MEALS)
     Route: 048
     Dates: start: 201902, end: 201902

REACTIONS (4)
  - Nervousness [Recovered/Resolved]
  - Drug ineffective for unapproved indication [Unknown]
  - Anxiety [Recovered/Resolved]
  - Product quality issue [Unknown]

NARRATIVE: CASE EVENT DATE: 201902
